FAERS Safety Report 10250541 (Version 1)
Quarter: 2014Q2

REPORT INFORMATION
  Report Type: Spontaneous
  Country: US (occurrence: US)
  Receive Date: 20140620
  Receipt Date: 20140620
  Transmission Date: 20141212
  Serious: No
  Sender: FDA-Public Use
  Company Number: US-ASTRAZENECA-2014SE28674

PATIENT
  Age: 84 Year
  Sex: Female
  Weight: 63.5 kg

DRUGS (9)
  1. METOPROLOL SCC ER [Suspect]
     Indication: BLOOD PRESSURE
     Dosage: 25 MG HALF A PILL BID
     Route: 048
     Dates: start: 20140103
  2. METOPROLOL SCC ER [Suspect]
     Indication: BLOOD PRESSURE
     Dosage: 1 PILL
     Route: 048
  3. BRILINTA [Suspect]
     Indication: MYOCARDIAL INFARCTION
     Route: 048
     Dates: start: 20140103, end: 201403
  4. BRILINTA [Suspect]
     Indication: STENT PLACEMENT
     Route: 048
     Dates: start: 20140103, end: 201403
  5. SYNTHROID [Concomitant]
     Indication: THYROID DISORDER
     Dosage: 88 DAILY
     Route: 048
     Dates: start: 2004
  6. RANEXA [Concomitant]
  7. LIPITOR [Concomitant]
     Dates: start: 201401
  8. ASPIRIN [Concomitant]
  9. VITAMINS [Concomitant]

REACTIONS (9)
  - Head discomfort [Recovering/Resolving]
  - Feeling of body temperature change [Recovering/Resolving]
  - Cough [Recovering/Resolving]
  - Dyspnoea [Recovering/Resolving]
  - Malaise [Recovering/Resolving]
  - Asthenia [Recovering/Resolving]
  - Lethargy [Recovering/Resolving]
  - Memory impairment [Unknown]
  - Off label use [Unknown]
